FAERS Safety Report 8948025 (Version 2)
Quarter: 2013Q1

REPORT INFORMATION
  Report Type: Spontaneous
  Country: US (occurrence: US)
  Receive Date: 20121204
  Receipt Date: 20130128
  Transmission Date: 20140127
  Serious: Yes (Other)
  Sender: FDA-Public Use
  Company Number: US-ASTRAZENECA-2012SE21659

PATIENT
  Age: 60 Year
  Sex: Female
  Weight: 75.3 kg

DRUGS (11)
  1. NEXIUM [Suspect]
     Indication: GASTROOESOPHAGEAL REFLUX DISEASE
     Route: 048
     Dates: start: 20120329
  2. NEXIUM [Suspect]
     Indication: DYSPEPSIA
     Route: 048
     Dates: start: 20120329
  3. NEXIUM [Suspect]
     Indication: GASTROOESOPHAGEAL REFLUX DISEASE
     Route: 048
  4. NEXIUM [Suspect]
     Indication: DYSPEPSIA
     Route: 048
  5. OMEPRAZOLE [Suspect]
     Indication: GASTROOESOPHAGEAL REFLUX DISEASE
     Route: 048
     Dates: start: 2007
  6. LASIX [Concomitant]
  7. BABY ASPIRIN [Concomitant]
     Dosage: DAILY
  8. IBUPROFEN [Concomitant]
  9. SPIRONOLACTONE [Concomitant]
  10. DIALIRSE [Concomitant]
  11. POTASSIUM [Concomitant]
     Dosage: ONCE A DAY

REACTIONS (6)
  - Gallbladder disorder [Unknown]
  - Nasopharyngitis [Unknown]
  - Vomiting projectile [Unknown]
  - Dyspepsia [Unknown]
  - Diarrhoea [Unknown]
  - Intentional drug misuse [Unknown]
